FAERS Safety Report 11131050 (Version 1)
Quarter: 2015Q2

REPORT INFORMATION
  Report Type: Spontaneous
  Country: CN (occurrence: CN)
  Receive Date: 20150522
  Receipt Date: 20150522
  Transmission Date: 20150821
  Serious: Yes (Hospitalization)
  Sender: FDA-Public Use
  Company Number: CN-ROCHE-1579776

PATIENT
  Age: 49 Year
  Sex: Male
  Weight: 60 kg

DRUGS (2)
  1. BANG DA [Suspect]
     Active Substance: PIPERACILLIN SODIUM\TAZOBACTAM SODIUM
     Indication: HAEMORRHOIDS
     Route: 041
     Dates: start: 20141016, end: 20141019
  2. ROCEPHIN [Suspect]
     Active Substance: CEFTRIAXONE SODIUM
     Indication: HAEMORRHOIDS
     Route: 041
     Dates: start: 20141016, end: 20141019

REACTIONS (11)
  - Asthenia [None]
  - Blood triglycerides increased [None]
  - Alanine aminotransferase increased [None]
  - Pyrexia [None]
  - Hyperhidrosis [None]
  - Blood glucose increased [None]
  - Hepatic function abnormal [Recovering/Resolving]
  - Aspartate aminotransferase increased [None]
  - Gamma-glutamyltransferase increased [None]
  - Abdominal distension [None]
  - Low density lipoprotein increased [None]

NARRATIVE: CASE EVENT DATE: 20141019
